FAERS Safety Report 6428987-6 (Version None)
Quarter: 2009Q4

REPORT INFORMATION
  Report Type: 
  Country: None (occurrence: None)
  Receive Date: 20091102
  Receipt Date: 20091019
  Transmission Date: 20100525
  Serious: Yes (Disabling)
  Sender: FDA-Public Use
  Company Number: A-US2009-25702

PATIENT
  Age: 50 Year
  Sex: Female
  Weight: 94.6 kg

DRUGS (22)
  1. TRACLEER [Suspect]
     Indication: PULMONARY ARTERIAL HYPERTENSION
     Dosage: 125 MG, BID, ORAL; 62.5 MG, BID, ORAL
     Route: 048
     Dates: start: 20090601, end: 20090601
  2. TRACLEER [Suspect]
     Indication: PULMONARY ARTERIAL HYPERTENSION
     Dosage: 125 MG, BID, ORAL; 62.5 MG, BID, ORAL
     Route: 048
     Dates: start: 20090601, end: 20090801
  3. METFORMIN HCL [Concomitant]
  4. FAMOTIDINE [Concomitant]
  5. HYDROCHLOROTHIAZIDE [Concomitant]
  6. POTASSIUM CHLORIDE [Concomitant]
  7. WELCHOL [Concomitant]
  8. TEMAZEPAM [Concomitant]
  9. FOLIC ACID [Concomitant]
  10. FLUOXETINE [Concomitant]
  11. LORAZEPAM [Concomitant]
  12. VERAPAMIL [Concomitant]
  13. PROPRANOLOL [Concomitant]
  14. ASPIRIN [Concomitant]
  15. PRAZOSIN GITS [Concomitant]
  16. LEVOTHYROXINE SODIUM [Concomitant]
  17. TAMOXIFEN CITRATE [Concomitant]
  18. PERCOCET [Concomitant]
  19. CYTOXAN [Concomitant]
  20. OMEGA 3 FISH (EICOSAPENTAENOIC ACID, DOCOSAHEXANOIC ACID) [Concomitant]
  21. VITAMIN D [Concomitant]
  22. LISINOPRIL [Concomitant]

REACTIONS (11)
  - BLINDNESS TRANSIENT [None]
  - CANDIDIASIS [None]
  - CHOKING [None]
  - DIZZINESS [None]
  - HYPOGLYCAEMIA [None]
  - MIGRAINE [None]
  - NAUSEA [None]
  - SOMNAMBULISM [None]
  - SWOLLEN TONGUE [None]
  - VERTIGO [None]
  - VOMITING [None]
